FAERS Safety Report 8547732-1 (Version None)
Quarter: 2012Q3

REPORT INFORMATION
  Report Type: 
  Country: None (occurrence: None)
  Receive Date: 20120727
  Receipt Date: 20120503
  Transmission Date: 20120928
  Serious: No
  Sender: FDA-Public Use
  Company Number: US-ASTRAZENECA-2012SE28680

PATIENT
  Age: 43 Year
  Sex: Male
  Weight: 93.4 kg

DRUGS (7)
  1. SEROQUEL XR [Suspect]
     Indication: POST-TRAUMATIC STRESS DISORDER
     Route: 048
     Dates: start: 20120101
  2. SEROQUEL XR [Suspect]
     Route: 048
     Dates: start: 20120101
  3. SEROQUEL XR [Suspect]
     Route: 048
     Dates: start: 20120101
  4. ACETAMINOPHEN [Concomitant]
     Route: 065
  5. SEROQUEL XR [Suspect]
     Route: 048
     Dates: start: 20120101
  6. SEROQUEL XR [Suspect]
     Route: 048
     Dates: start: 20120101
  7. IBUPROPHEN [Concomitant]
     Dosage: TWO TIMES DAILY.
     Route: 065

REACTIONS (6)
  - FEELING ABNORMAL [None]
  - ABDOMINAL PAIN [None]
  - INTENTIONAL DRUG MISUSE [None]
  - DIARRHOEA [None]
  - MALAISE [None]
  - MIGRAINE [None]
